FAERS Safety Report 4534445-6 (Version None)
Quarter: 2004Q4

REPORT INFORMATION
  Report Type: 
  Country: None (occurrence: None)
  Receive Date: 20041222
  Receipt Date: 20041101
  Transmission Date: 20050328
  Serious: Yes (Hospitalization)
  Sender: FDA-Public Use
  Company Number: JP-SOLVAY-00304003951

PATIENT
  Age: 6019 Day
  Sex: Male
  Weight: 44 kg

DRUGS (8)
  1. PANVITAN [Concomitant]
     Indication: CYSTIC FIBROSIS PANCREATIC
     Dosage: DAILY DOSE: 1 GRAM(S)
     Route: 048
     Dates: start: 20001114
  2. PANCREATIN [Suspect]
     Indication: CYSTIC FIBROSIS PANCREATIC
     Dosage: DAILY DOSE: 6 GRAM(S)
     Route: 048
     Dates: start: 20001114
  3. KATIV-N [Concomitant]
     Indication: CYSTIC FIBROSIS PANCREATIC
     Dosage: DAILY DOSE: 2 MILLIGRAM(S)
     Route: 048
     Dates: start: 20040428
  4. JUVELA [Concomitant]
     Indication: CYSTIC FIBROSIS PANCREATIC
     Dosage: DAILY DOSE: 300 MILLIGRAM(S)
     Route: 048
     Dates: start: 20001114
  5. BISOLVON [Concomitant]
     Indication: CYSTIC FIBROSIS PANCREATIC
     Dosage: DAILY DOSE: 8 MILLIGRAM(S)
     Route: 048
     Dates: start: 20001114
  6. MUCODYNE [Concomitant]
     Indication: CYSTIC FIBROSIS PANCREATIC
     Dosage: DAILY DOSE: 900 MILLIGRAM(S)
     Route: 048
     Dates: start: 20040622
  7. ALFAROL [Concomitant]
     Indication: CYSTIC FIBROSIS PANCREATIC
     Dosage: DAILY DOSE: .5 MICROGRAM(S)
     Route: 048
     Dates: start: 20001114
  8. ONON DRYSYRUP [Concomitant]
     Indication: RHINITIS ALLERGIC
     Dosage: DAILY DOSE: 250 MILLIGRAM(S)
     Route: 048
     Dates: start: 20021011

REACTIONS (8)
  - ALANINE AMINOTRANSFERASE INCREASED [None]
  - ASPARTATE AMINOTRANSFERASE INCREASED [None]
  - BLOOD ALKALINE PHOSPHATASE INCREASED [None]
  - BLOOD LACTATE DEHYDROGENASE INCREASED [None]
  - DIARRHOEA [None]
  - LIVER FUNCTION TEST ABNORMAL [None]
  - PNEUMONIA [None]
  - VOMITING [None]
